FAERS Safety Report 19900207 (Version 4)
Quarter: 2022Q3

REPORT INFORMATION
  Report Type: Report from Study
  Country: AU (occurrence: AU)
  Receive Date: 20210930
  Receipt Date: 20220629
  Transmission Date: 20221027
  Serious: Yes (Hospitalization)
  Sender: FDA-Public Use
  Company Number: AU-NOVARTISPH-NVSC2021AU216157

PATIENT
  Age: 62 Year
  Sex: Female
  Weight: 67.9 kg

DRUGS (21)
  1. CANAKINUMAB [Suspect]
     Active Substance: CANAKINUMAB
     Indication: Non-small cell lung cancer
     Dosage: CODE NOT BROKEN
     Route: 058
     Dates: start: 20190925
  2. CANAKINUMAB [Suspect]
     Active Substance: CANAKINUMAB
     Indication: Non-small cell lung cancer
     Dosage: CODE NOT BROKEN
     Route: 058
     Dates: start: 20190925
  3. INVESTIGATIONAL PRODUCT [Suspect]
     Active Substance: INVESTIGATIONAL PRODUCT
     Indication: Non-small cell lung cancer
     Dosage: CODE NOT BROKEN
     Route: 058
     Dates: start: 20190925
  4. PLACEBO [Suspect]
     Active Substance: UNSPECIFIED INGREDIENT
     Indication: Non-small cell lung cancer
     Dosage: CODE NOT BROKEN
     Route: 058
     Dates: start: 20190925
  5. PEMBROLIZUMAB [Suspect]
     Active Substance: PEMBROLIZUMAB
     Indication: Non-small cell lung cancer
     Dosage: 200 MG
     Route: 042
     Dates: start: 20190925
  6. PEMETREXED DISODIUM [Suspect]
     Active Substance: PEMETREXED DISODIUM
     Indication: Non-small cell lung cancer
     Dosage: 950 MG
     Route: 042
     Dates: start: 20190925
  7. MIRTAZAPINE [Concomitant]
     Active Substance: MIRTAZAPINE
     Indication: Mood swings
     Dosage: UNK
     Route: 065
     Dates: start: 20200530
  8. MIRTAZAPINE [Concomitant]
     Active Substance: MIRTAZAPINE
     Indication: Pruritus
  9. FENTANYL [Concomitant]
     Active Substance: FENTANYL
     Indication: Back pain
     Dosage: UNK
     Route: 065
     Dates: start: 20190610
  10. FENTANYL [Concomitant]
     Active Substance: FENTANYL
     Indication: Musculoskeletal chest pain
  11. RIVAROXABAN [Concomitant]
     Active Substance: RIVAROXABAN
     Indication: Dyspnoea
     Dosage: UNK
     Route: 065
     Dates: start: 20210203, end: 20210923
  12. OXAZEPAM [Concomitant]
     Active Substance: OXAZEPAM
     Indication: Bone pain
     Dosage: UNK
     Route: 065
     Dates: start: 20210226
  13. ONDANSETRON [Concomitant]
     Active Substance: ONDANSETRON
     Indication: Nausea
     Dosage: UNK
     Route: 065
     Dates: start: 20190910
  14. HYDROXOCOBALAMIN [Concomitant]
     Active Substance: HYDROXOCOBALAMIN
     Indication: Premedication
     Dosage: UNK
     Route: 065
     Dates: start: 20190912
  15. PANTOPRAZOLE [Concomitant]
     Active Substance: PANTOPRAZOLE
     Indication: Gastrooesophageal reflux disease
     Dosage: UNK
     Route: 065
     Dates: start: 201006
  16. ALBUTEROL [Concomitant]
     Active Substance: ALBUTEROL
     Indication: Asthma
     Dosage: UNK
     Route: 065
     Dates: start: 20110201
  17. FEXOFENADINE HYDROCHLORIDE [Concomitant]
     Active Substance: FEXOFENADINE HYDROCHLORIDE
     Indication: Rash
     Dosage: UNK
     Route: 065
     Dates: start: 20191029
  18. TAPENTADOL [Concomitant]
     Active Substance: TAPENTADOL
     Indication: Bone pain
     Dosage: UNK
     Route: 065
     Dates: start: 20200530
  19. TAPENTADOL [Concomitant]
     Active Substance: TAPENTADOL
     Indication: Musculoskeletal chest pain
  20. HYDROMORPHONE HYDROCHLORIDE [Concomitant]
     Active Substance: HYDROMORPHONE HYDROCHLORIDE
     Indication: Bone pain
     Dosage: UNK
     Route: 065
     Dates: start: 20200530
  21. HYDROMORPHONE HYDROCHLORIDE [Concomitant]
     Active Substance: HYDROMORPHONE HYDROCHLORIDE
     Indication: Musculoskeletal chest pain

REACTIONS (1)
  - Rectal haemorrhage [Recovered/Resolved]

NARRATIVE: CASE EVENT DATE: 20210918
